FAERS Safety Report 6102623-0 (Version None)
Quarter: 2009Q1

REPORT INFORMATION
  Report Type: 
  Country: None (occurrence: None)
  Receive Date: 20090304
  Receipt Date: 20081021
  Transmission Date: 20090719
  Serious: No
  Sender: FDA-Public Use
  Company Number: A0752780A

PATIENT
  Age: 11 Year
  Sex: Female

DRUGS (3)
  1. ROPINIROLE [Suspect]
     Indication: DRUG USE FOR UNKNOWN INDICATION
     Dosage: .25MG TWICE PER DAY
     Route: 048
     Dates: start: 20080820, end: 20080917
  2. RISPERDAL [Suspect]
     Indication: BIPOLAR DISORDER
     Dosage: 25MG TWICE PER DAY
     Dates: start: 20060101, end: 20080801
  3. NO CONCURRENT MEDICATION [Concomitant]

REACTIONS (9)
  - DIZZINESS [None]
  - DRUG DISPENSING ERROR [None]
  - DYSPNOEA [None]
  - DYSURIA [None]
  - FATIGUE [None]
  - HYPOAESTHESIA [None]
  - MEDICATION ERROR [None]
  - PRURITUS [None]
  - RASH [None]
